FAERS Safety Report 9634091 (Version 3)
Quarter: 2014Q1

REPORT INFORMATION
  Report Type: Spontaneous
  Country: US (occurrence: US)
  Receive Date: 20131021
  Receipt Date: 20140225
  Transmission Date: 20141002
  Serious: No
  Sender: FDA-Public Use
  Company Number: US-009507513-1310USA002781

PATIENT
  Sex: Female
  Weight: 87.98 kg

DRUGS (4)
  1. VICTRELIS [Suspect]
     Indication: HEPATITIS C
     Dosage: THREE TIMES PER DAY
     Route: 048
     Dates: start: 20130922
  2. RIBAPAK [Suspect]
     Indication: HEPATITIS C
     Dosage: 600 MG, TWICE A DAY
     Route: 048
     Dates: start: 20130824, end: 20130916
  3. RIBAPAK [Suspect]
     Dosage: 600 MG, ONCE A DAY
     Route: 048
     Dates: start: 20130916
  4. PEGASYS [Suspect]
     Indication: HEPATITIS C
     Dosage: ONCE A WEEK
     Dates: start: 20130824

REACTIONS (12)
  - Ageusia [Unknown]
  - Urinary tract infection [Unknown]
  - Weight decreased [Unknown]
  - Nausea [Unknown]
  - Drug dose omission [Unknown]
  - Decreased appetite [Unknown]
  - Dyspepsia [Unknown]
  - Fatigue [Unknown]
  - Memory impairment [Unknown]
  - Dysgeusia [Unknown]
  - Eating disorder [Unknown]
  - White blood cell count decreased [Unknown]
